FAERS Safety Report 22630590 (Version 1)
Quarter: 2023Q2

REPORT INFORMATION
  Report Type: Spontaneous
  Country: US (occurrence: US)
  Receive Date: 20230622
  Receipt Date: 20230622
  Transmission Date: 20230721
  Serious: No
  Sender: FDA-Public Use
  Company Number: US-PFIZER INC-202300222726

PATIENT
  Age: 59 Year
  Sex: Female

DRUGS (5)
  1. IBRANCE [Suspect]
     Active Substance: PALBOCICLIB
     Dosage: 100 MG, CYCLIC (DAILY 3 WEEKS ON, ONE WEEK OFF)
     Route: 048
  2. CITALOPRAM [Concomitant]
     Active Substance: CITALOPRAM HYDROBROMIDE
  3. FASLODEX [Concomitant]
     Active Substance: FULVESTRANT
  4. VALSARTAN [Concomitant]
     Active Substance: VALSARTAN
  5. METOPROLOL [Concomitant]
     Active Substance: METOPROLOL

REACTIONS (1)
  - COVID-19 [Recovered/Resolved]

NARRATIVE: CASE EVENT DATE: 20230301
